FAERS Safety Report 14092686 (Version 1)
Quarter: 2017Q4

REPORT INFORMATION
  Report Type: Spontaneous
  Country: US (occurrence: US)
  Receive Date: 20171016
  Receipt Date: 20171016
  Transmission Date: 20180321
  Serious: Yes (Hospitalization, Other)
  Sender: FDA-Public Use
  Company Number: US-ASTRAZENECA-2017SF03915

PATIENT
  Age: 54 Year
  Sex: Female
  Weight: 38.6 kg

DRUGS (17)
  1. DOCUSATE SODIUM. [Concomitant]
     Active Substance: DOCUSATE SODIUM
     Indication: ABDOMINAL DISCOMFORT
     Route: 048
     Dates: start: 2012
  2. SPIRONOLACTONE. [Concomitant]
     Active Substance: SPIRONOLACTONE
     Indication: FLUID INTAKE RESTRICTION
     Route: 048
     Dates: start: 201503
  3. CYMBALTA [Concomitant]
     Active Substance: DULOXETINE HYDROCHLORIDE
     Indication: BACK PAIN
     Route: 048
  4. ASPIRIN. [Concomitant]
     Active Substance: ASPIRIN
     Indication: COAGULOPATHY
     Route: 048
     Dates: start: 2015
  5. PRILOSEC OTC [Suspect]
     Active Substance: OMEPRAZOLE MAGNESIUM
     Indication: GASTROOESOPHAGEAL REFLUX DISEASE
     Route: 048
     Dates: start: 2017
  6. ENTRESTO [Concomitant]
     Active Substance: SACUBITRIL\VALSARTAN
     Indication: CARDIAC FAILURE
     Dosage: 24/26 MILLIGRAMS, TWO TIMES A DAY
     Route: 048
     Dates: start: 2016
  7. LASIX [Concomitant]
     Active Substance: FUROSEMIDE
     Indication: OEDEMA
     Dosage: 20.0MG AS REQUIRED
     Route: 048
     Dates: start: 2015
  8. MONTELUKAST SODIUM. [Concomitant]
     Active Substance: MONTELUKAST SODIUM
     Indication: MULTIPLE ALLERGIES
     Route: 048
     Dates: start: 2015
  9. PROVENTIL [Concomitant]
     Active Substance: ALBUTEROL
     Indication: HYPERSENSITIVITY
     Dosage: 108.0UG AS REQUIRED
     Route: 055
     Dates: start: 2014
  10. VITAMIN D [Concomitant]
     Active Substance: CHOLECALCIFEROL
     Indication: VITAMIN D DECREASED
     Route: 048
  11. FLONAZE [Concomitant]
     Indication: HYPERSENSITIVITY
     Dosage: 50 MICROGRAMS DAILY, 2 SPRAYS IN EACH NOSTRIL DAILY
     Route: 045
  12. CARVEDILOL. [Concomitant]
     Active Substance: CARVEDILOL
     Indication: CARDIAC DISORDER
     Route: 048
     Dates: start: 2015
  13. PROVENTIL [Concomitant]
     Active Substance: ALBUTEROL
     Indication: BRONCHITIS
     Dosage: 108.0UG AS REQUIRED
     Route: 055
     Dates: start: 2014
  14. SYMBICORT [Suspect]
     Active Substance: BUDESONIDE\FORMOTEROL FUMARATE DIHYDRATE
     Indication: ASTHMA
     Dosage: 160/4.5 MCG, TWO INHALATIONS DAILY
     Route: 055
  15. FLONAZE [Concomitant]
     Indication: SINUSITIS
     Dosage: 50 MICROGRAMS DAILY, 2 SPRAYS IN EACH NOSTRIL DAILY
     Route: 045
  16. SYNTHROID [Concomitant]
     Active Substance: LEVOTHYROXINE SODIUM
     Indication: HYPOTHYROIDISM
     Route: 048
     Dates: start: 1995
  17. SIMVASTATIN. [Concomitant]
     Active Substance: SIMVASTATIN
     Indication: BLOOD CHOLESTEROL INCREASED
     Route: 048
     Dates: start: 2015

REACTIONS (10)
  - Viral infection [Unknown]
  - Sinusitis [Unknown]
  - Gastrooesophageal reflux disease [Unknown]
  - Myocardial infarction [Unknown]
  - Petechiae [Unknown]
  - Respiratory tract infection viral [Unknown]
  - Pyrexia [Unknown]
  - Cardiac failure [Not Recovered/Not Resolved]
  - Off label use [Unknown]
  - Viral diarrhoea [Unknown]

NARRATIVE: CASE EVENT DATE: 2015
